FAERS Safety Report 9947259 (Version 1)
Quarter: 2014Q1

REPORT INFORMATION
  Report Type: Report from Study
  Country: US (occurrence: US)
  Receive Date: 20140303
  Receipt Date: 20140303
  Transmission Date: 20141002
  Serious: No
  Sender: FDA-Public Use
  Company Number: US-ABBVIE-13P-163-1064424-00

PATIENT
  Age: 60 Year
  Sex: Female

DRUGS (20)
  1. HUMIRA [Suspect]
     Indication: PSORIATIC ARTHROPATHY
     Dates: start: 20130222
  2. CARBAMAZEPINE [Concomitant]
     Indication: BIPOLAR DISORDER
     Dosage: 3 TABS DAILY
  3. CARBAMAZEPINE [Concomitant]
     Indication: DEPRESSION
  4. CYMBALTA [Concomitant]
     Indication: BIPOLAR DISORDER
     Dosage: 2 TABS DAILY
  5. CRESTOR [Concomitant]
     Indication: BLOOD CHOLESTEROL INCREASED
     Dosage: 40 MG DAILY
  6. GEMFIBROZIL [Concomitant]
     Indication: BLOOD CHOLESTEROL INCREASED
     Dosage: 600 MG DAILY
  7. ARAVA [Concomitant]
     Indication: PSORIATIC ARTHROPATHY
     Dosage: 20 MG DAILY
  8. OMEPRAZOLE [Concomitant]
     Indication: PRODUCT USED FOR UNKNOWN INDICATION
     Dosage: 20 MG DAILY
  9. PIOGLITAZONE-METFORMIN [Concomitant]
     Indication: DIABETES MELLITUS
     Dosage: 15-850 MG TWICE DAILY
  10. RAMIPRIL [Concomitant]
     Indication: HYPERTENSION
     Dosage: 10 MG DAILY
  11. TRAZODONE [Concomitant]
     Indication: INSOMNIA
     Dosage: AT BEDTIME
  12. SULFASALAZINE [Concomitant]
     Indication: PSORIATIC ARTHROPATHY
  13. VOLTAREN [Concomitant]
     Indication: ARTHRALGIA
     Dosage: 2 TIMES DAILY, 3 TIMES DAILY, AS REQUIRED
  14. VICTOZA [Concomitant]
     Indication: DIABETES MELLITUS
     Dosage: IN AM
     Route: 050
  15. APIDRA [Concomitant]
     Indication: DIABETES MELLITUS
     Dosage: PER SLIDING SCALE, 3 TIMES DAILY
     Route: 050
  16. LANTUS [Concomitant]
     Indication: DIABETES MELLITUS
     Dosage: 30 UNITS IN AM, 60 UNITS IN PM
     Route: 050
  17. ZINC [Concomitant]
     Indication: PRODUCT USED FOR UNKNOWN INDICATION
  18. VITAMIN D [Concomitant]
     Indication: PRODUCT USED FOR UNKNOWN INDICATION
  19. MULTIVITAMIN [Concomitant]
     Indication: PRODUCT USED FOR UNKNOWN INDICATION
  20. KRILL OIL [Concomitant]
     Indication: PRODUCT USED FOR UNKNOWN INDICATION
     Dosage: DAILY

REACTIONS (2)
  - Dizziness [Recovering/Resolving]
  - Dizziness [Recovering/Resolving]
